FAERS Safety Report 4406645-7 (Version None)
Quarter: 2004Q3

REPORT INFORMATION
  Report Type: 
  Country: None (occurrence: None)
  Receive Date: 20040716
  Receipt Date: 20040705
  Transmission Date: 20050211
  Serious: Yes (Hospitalization)
  Sender: FDA-Public Use
  Company Number: JP-JNJFOC-20040701938

PATIENT
  Sex: Female

DRUGS (5)
  1. ITRACONAZOLE [Suspect]
     Indication: INFECTION PROPHYLAXIS
     Dosage: 200 MG, IN 1 DAY, ORAL
     Route: 048
  2. VINBLASTINE SULFATE [Suspect]
     Indication: HODGKIN'S DISEASE
     Dosage: INTRAVENOUS
     Route: 042
  3. DOXORUBICIN HCL [Concomitant]
  4. BLEOMYCIN HYDROCHLORIDE [Concomitant]
  5. DACARBAZINE [Concomitant]

REACTIONS (3)
  - DRUG INTERACTION [None]
  - ILEUS [None]
  - NEUROTOXICITY [None]
